FAERS Safety Report 4417843-0 (Version None)
Quarter: 2004Q2

REPORT INFORMATION
  Report Type: 
  Country: None (occurrence: None)
  Receive Date: 20040621
  Receipt Date: 20040420
  Transmission Date: 20050107
  Serious: Yes (Other)
  Sender: FDA-Public Use
  Company Number: 2004027379

PATIENT
  Age: 59 Year
  Sex: Female
  Weight: 72.5755 kg

DRUGS (11)
  1. VFEND [Suspect]
     Indication: ASPERGILLOSIS
     Dosage: 400 MG (BID)
     Dates: start: 20030505
  2. AMPHOTERICIN B [Suspect]
     Indication: ILL-DEFINED DISORDER
     Dosage: INTRAVENOUS
     Route: 042
     Dates: start: 20030501, end: 20030501
  3. LEVOTHYROXINE SODIUM [Concomitant]
  4. DESMOPRESSIN (DESMOPRESSIN) [Concomitant]
  5. HYDROCORTISONE [Concomitant]
  6. PREDNISONE [Concomitant]
  7. CHROMAGEN (ASCORBIC ACID, CYANOCOBALAMIN, FERROUS FUMARATE, STOMACH DE [Concomitant]
  8. POTASSIUM (POTASSIUM) [Concomitant]
  9. MAGNESIUM (MAGNESIUM) [Concomitant]
  10. SILYMARIN (SILYMARIN) [Concomitant]
  11. THERAGRAN-M (MINERALS NOS, VITAMINS NOS) [Concomitant]

REACTIONS (12)
  - ACTIVATED PARTIAL THROMBOPLASTIN TIME SHORTENED [None]
  - BLOOD ALKALINE PHOSPHATASE INCREASED [None]
  - BLOOD BILIRUBIN ABNORMAL [None]
  - BLOOD POTASSIUM ABNORMAL [None]
  - CHILLS [None]
  - HAEMATOCRIT DECREASED [None]
  - HEADACHE [None]
  - LIVER FUNCTION TEST ABNORMAL [None]
  - NAUSEA [None]
  - RED BLOOD CELL COUNT DECREASED [None]
  - SINUSITIS [None]
  - WHITE BLOOD CELL COUNT INCREASED [None]
